FAERS Safety Report 5295649-0 (Version None)
Quarter: 2007Q2

REPORT INFORMATION
  Report Type: 
  Country: None (occurrence: None)
  Receive Date: 20070410
  Receipt Date: 20070410
  Transmission Date: 20071010
  Serious: No
  Sender: FDA-Public Use
  Company Number: None

PATIENT
  Age: 60 Year
  Sex: Female
  Weight: 53.5244 kg

DRUGS (1)
  1. AMBIEN [Suspect]
     Indication: DEPRESSION
     Dates: start: 20060401, end: 20070409

REACTIONS (3)
  - AMNESIA [None]
  - MIDDLE INSOMNIA [None]
  - SLEEP DISORDER [None]
